FAERS Safety Report 13756324 (Version 1)
Quarter: 2017Q3

REPORT INFORMATION
  Report Type: Spontaneous
  Country: CA (occurrence: CA)
  Receive Date: 20170714
  Receipt Date: 20170714
  Transmission Date: 20171127
  Serious: Yes (Death)
  Sender: FDA-Public Use
  Company Number: CA-PFIZER INC-2017305092

PATIENT
  Age: 64 Year
  Sex: Male

DRUGS (1)
  1. SUTENT [Suspect]
     Active Substance: SUNITINIB MALATE
     Dosage: 50 MG, CYCLIC (50 MG  ORAL DOSE TAKEN ONCE DAILY 4 WEEKS ON 2 WEEKS OFF)
     Route: 048
     Dates: start: 20141013

REACTIONS (1)
  - Death [Fatal]

NARRATIVE: CASE EVENT DATE: 20170407
